FAERS Safety Report 10661878 (Version 1)
Quarter: 2014Q4

REPORT INFORMATION
  Report Type: Spontaneous
  Country: AU (occurrence: None)
  Receive Date: 20141216
  Receipt Date: 20141216
  Transmission Date: 20150529
  Serious: Yes (Hospitalization)
  Sender: FDA-Public Use
  Company Number: AU-2014TEC0000030

PATIENT
  Age: 61 Year
  Sex: Male

DRUGS (2)
  1. ENOXAPARIN (ENOXAPARIN) [Suspect]
     Active Substance: ENOXAPARIN
     Indication: THROMBOSIS PROPHYLAXIS
     Dosage: 40 MG, QD , UNKNOWN?
  2. HEPARIN SODIUM INJECTION USP, PRESERVATIVE FREE (HEPARIN SODIUM) INJECTION [Suspect]
     Active Substance: HEPARIN SODIUM
     Indication: THROMBOSIS PROPHYLAXIS
     Dosage: 5000 DF, BID , UNKNOWN

REACTIONS (11)
  - Confusional state [None]
  - Adrenal insufficiency [None]
  - Haemoglobin decreased [None]
  - Heparin-induced thrombocytopenia [None]
  - Rash erythematous [None]
  - White blood cell count increased [None]
  - Abdominal pain upper [None]
  - Rash maculo-papular [None]
  - Adrenal haemorrhage [None]
  - Blood pressure systolic increased [None]
  - Deep vein thrombosis [None]
